FAERS Safety Report 11279359 (Version 1)
Quarter: 2015Q3

REPORT INFORMATION
  Report Type: Spontaneous
  Country: US (occurrence: None)
  Receive Date: 20150716
  Receipt Date: 20150716
  Transmission Date: 20151125
  Serious: Yes (Other)
  Sender: FDA-Public Use
  Company Number: None

PATIENT

DRUGS (1)
  1. FENTANYL 10MCG/ML [Suspect]
     Active Substance: FENTANYL
     Dosage: MANY IN HOSPITAL, VARIES
     Dates: start: 20150701, end: 20150713

REACTIONS (3)
  - Drug ineffective [None]
  - Product quality issue [None]
  - Product formulation issue [None]

NARRATIVE: CASE EVENT DATE: 20150713
